FAERS Safety Report 6306219-7 (Version None)
Quarter: 2009Q3

REPORT INFORMATION
  Report Type: 
  Country: None (occurrence: None)
  Receive Date: 20090810
  Receipt Date: 20090727
  Transmission Date: 20100115
  Serious: Yes (Hospitalization)
  Sender: FDA-Public Use
  Company Number: KR-JNJFOC-20090705975

PATIENT
  Age: 31 Year
  Sex: Female
  Weight: 57 kg

DRUGS (12)
  1. DECITABINE (DECITABINE) LYOPHILIZED POWDER [Suspect]
     Indication: MYELODYSPLASTIC SYNDROME
     Dosage: 20 MG/M2, 1 IN 1 DAY, INTRAVENOUS
     Route: 042
     Dates: start: 20090511, end: 20090515
  2. DECITABINE (DECITABINE) LYOPHILIZED POWDER [Suspect]
     Indication: MYELODYSPLASTIC SYNDROME
     Dosage: 20 MG/M2, 1 IN 1 DAY, INTRAVENOUS
     Route: 042
     Dates: start: 20090627, end: 20090701
  3. AMIKIN (AMIKACIN SULFATE) UNSPECIFIED [Concomitant]
  4. ROACCUTANE (ISOTRETINOIN) UNSPECIFIED [Concomitant]
  5. CHLORPHENIRAMINE (CHLORPHENAMINE) UNSPECIFIED [Concomitant]
  6. POVIDONE (POLYVIDONE) UNSPECIFIED [Concomitant]
  7. TAMIPOOL (RETINOL PALMITATE) UNSPECIFIED [Concomitant]
  8. DEXTROSE (GLUCOSE) UNSPECIFIED [Concomitant]
  9. CRAVIT (LEVOFLOXACIN) UNSPECIFIED [Concomitant]
  10. AMOXICILLIN [Concomitant]
  11. LEVOFLOXACIN [Concomitant]
  12. GRANDPAZE-F (ALIMENTARY TRACT AND METABOLISM) [Concomitant]

REACTIONS (1)
  - GASTROENTERITIS [None]
